FAERS Safety Report 7837969-9 (Version None)
Quarter: 2011Q4

REPORT INFORMATION
  Report Type: 
  Country: None (occurrence: None)
  Receive Date: 20111024
  Receipt Date: 20110916
  Transmission Date: 20120403
  Serious: No
  Sender: FDA-Public Use
  Company Number: US-ABBOTT-11P-163-0855557-00

PATIENT
  Sex: Female

DRUGS (2)
  1. LUPRON DEPOT [Suspect]
     Indication: UTERINE LEIOMYOMA
     Route: 050
     Dates: start: 20110523
  2. MULTIVITAMIN AND MINERAL [Concomitant]
     Indication: SUPPLEMENTATION THERAPY

REACTIONS (3)
  - OEDEMA PERIPHERAL [None]
  - WEIGHT INCREASED [None]
  - JOINT SWELLING [None]
